FAERS Safety Report 7303911-2 (Version None)
Quarter: 2011Q1

REPORT INFORMATION
  Report Type: 
  Country: None (occurrence: None)
  Receive Date: 20110221
  Receipt Date: 20110215
  Transmission Date: 20110831
  Serious: Yes (Death)
  Sender: FDA-Public Use
  Company Number: B0701084A

PATIENT
  Sex: Male

DRUGS (4)
  1. MABCAMPATH [Concomitant]
     Route: 065
     Dates: start: 20101001
  2. ARZERRA [Suspect]
     Dosage: 300MG PER DAY
     Route: 065
     Dates: start: 20110207, end: 20110207
  3. ZOLEDRONIC ACID [Concomitant]
     Indication: OSTEOPOROTIC FRACTURE
     Route: 065
     Dates: start: 20100618
  4. LEUKERAN [Concomitant]
     Route: 065
     Dates: start: 20081120

REACTIONS (1)
  - CARDIAC ARREST [None]
